FAERS Safety Report 25144354 (Version 1)
Quarter: 2025Q2

REPORT INFORMATION
  Report Type: Report from Study
  Country: US (occurrence: US)
  Receive Date: 20250401
  Receipt Date: 20250401
  Transmission Date: 20250717
  Serious: No
  Sender: TAKEDA
  Company Number: US-TAKEDA-2022TUS018474

PATIENT
  Age: 40 Year
  Sex: Female
  Weight: 107 kg

DRUGS (16)
  1. HUMAN IMMUNOGLOBULIN G\HYALURONIDASE RECOMBINANT HUMAN [Suspect]
     Active Substance: HUMAN IMMUNOGLOBULIN G\HYALURONIDASE (HUMAN RECOMBINANT)
     Indication: Immunodeficiency common variable
     Dosage: 40 GRAM, Q4WEEKS
     Dates: start: 20220204
  2. HUMAN IMMUNOGLOBULIN G\HYALURONIDASE RECOMBINANT HUMAN [Suspect]
     Active Substance: HUMAN IMMUNOGLOBULIN G\HYALURONIDASE (HUMAN RECOMBINANT)
     Indication: Iron deficiency anaemia
  3. DIPHENHYDRAMINE HYDROCHLORIDE [Concomitant]
     Active Substance: DIPHENHYDRAMINE HYDROCHLORIDE
  4. ZOLOFT [Concomitant]
     Active Substance: SERTRALINE HYDROCHLORIDE
  5. VENCLEXTA [Concomitant]
     Active Substance: VENETOCLAX
  6. IMODIUM [Concomitant]
     Active Substance: LOPERAMIDE HYDROCHLORIDE
  7. ACETAMINOPHEN [Concomitant]
     Active Substance: ACETAMINOPHEN
  8. SODIUM CHLORIDE [Concomitant]
     Active Substance: SODIUM CHLORIDE
  9. VITAMIN B [Concomitant]
     Active Substance: VITAMIN B
  10. CALQUENCE [Concomitant]
     Active Substance: ACALABRUTINIB
  11. TYLENOL [Concomitant]
     Active Substance: ACETAMINOPHEN
  12. LIDOCAINE [Concomitant]
     Active Substance: LIDOCAINE
  13. VALACYCLOVIR [Concomitant]
     Active Substance: VALACYCLOVIR HYDROCHLORIDE
  14. EPINEPHRINE [Concomitant]
     Active Substance: EPINEPHRINE
  15. FERROUS SULFATE [Concomitant]
     Active Substance: FERROUS SULFATE
  16. CYANOCOBALAMIN [Concomitant]
     Active Substance: CYANOCOBALAMIN

REACTIONS (9)
  - Infusion related reaction [Unknown]
  - Urinary tract infection [Unknown]
  - Viral infection [Not Recovered/Not Resolved]
  - COVID-19 [Unknown]
  - Infusion site discharge [Unknown]
  - Incorrect drug administration rate [Unknown]
  - Injection site pruritus [Unknown]
  - Infusion site pain [Unknown]
  - Fatigue [Unknown]

NARRATIVE: CASE EVENT DATE: 20220805
